FAERS Safety Report 16914884 (Version 1)
Quarter: 2019Q4

REPORT INFORMATION
  Report Type: Spontaneous
  Country: GB (occurrence: GB)
  Receive Date: 20191014
  Receipt Date: 20191014
  Transmission Date: 20200122
  Serious: Yes (Hospitalization)
  Sender: FDA-Public Use
  Company Number: GB-PFIZER INC-2019436036

PATIENT
  Age: 54 Year
  Sex: Male

DRUGS (9)
  1. FOSTAIR NEXTHALER [Concomitant]
     Active Substance: BECLOMETHASONE DIPROPIONATE\FORMOTEROL FUMARATE
     Dosage: 4 DF, DAILY 100MICROGRAMS/6MICROGRAMS/DOSE. PUFFS.
     Route: 055
  2. DIAZEPAM. [Concomitant]
     Active Substance: DIAZEPAM
     Dosage: 12 MG, DAILY
  3. DOXAZOSIN [Concomitant]
     Active Substance: DOXAZOSIN MESYLATE
     Dosage: 1 MG, DAILY
  4. ESOMEPRAZOLE. [Concomitant]
     Active Substance: ESOMEPRAZOLE MAGNESIUM
     Dosage: 40 MG, DAILY EACH MORNING
  5. TRAMADOL. [Concomitant]
     Active Substance: TRAMADOL
     Dosage: 300 MG, DAILY
  6. SERTRALINE HCL [Suspect]
     Active Substance: SERTRALINE HYDROCHLORIDE
     Dosage: 150MG DAILY, 100MG + 50MG AT NIGHT AS A SINGLE DOSE
  7. VENTOLIN [Concomitant]
     Active Substance: ALBUTEROL SULFATE
     Dosage: ONE OR TWO PUFFS FOUR TIMES A DAY WHEN REQUIRED
     Route: 055
  8. RANITIDINE. [Concomitant]
     Active Substance: RANITIDINE
     Dosage: 300 MG, DAILY
  9. GABAPENTIN. [Concomitant]
     Active Substance: GABAPENTIN
     Dosage: 1800 MG, DAILY

REACTIONS (4)
  - Haematemesis [Recovered/Resolved]
  - Gastrointestinal haemorrhage [Unknown]
  - Melaena [Not Recovered/Not Resolved]
  - Abdominal pain upper [Unknown]
